FAERS Safety Report 8818675 (Version 1)
Quarter: 2012Q4

REPORT INFORMATION
  Report Type: 
  Country: DE (occurrence: DE)
  Receive Date: 20121001
  Receipt Date: 20121001
  Transmission Date: 20130627
  Serious: Yes (Congenital Anomaly, Other)
  Sender: FDA-Public Use
  Company Number: GXKR2012DE003055

PATIENT

DRUGS (4)
  1. VENLAFAXINE [Suspect]
     Dosage: Maternal dose: 225 [mg/d ]
     Route: 064
     Dates: start: 20101022
  2. VENLAFAXINE [Suspect]
     Dosage: Maternal dose: 150mg/d (from week 6 until week 28)
     Route: 064
     Dates: end: 20110702
  3. FOLIC ACID [Concomitant]
     Dosage: Maternal dose: 0.4 [mg/d ]
     Route: 064
     Dates: start: 20101201, end: 20110702
  4. TAVOR (LORAZEPAM) [Concomitant]
     Dosage: 0.5 [mg ]/ only once
     Route: 064
     Dates: start: 20110310, end: 20110310

REACTIONS (4)
  - Haemangioma [Recovering/Resolving]
  - Low birth weight baby [Unknown]
  - Premature baby [Unknown]
  - Foetal exposure during pregnancy [Unknown]
